FAERS Safety Report 18221417 (Version 2)
Quarter: 2020Q3

REPORT INFORMATION
  Report Type: Spontaneous
  Country: US (occurrence: US)
  Receive Date: 20200902
  Receipt Date: 20200930
  Transmission Date: 20201103
  Serious: No
  Sender: FDA-Public Use
  Company Number: US-PFIZER INC-2020339503

PATIENT
  Age: 77 Year
  Sex: Female

DRUGS (1)
  1. IBRANCE [Suspect]
     Active Substance: PALBOCICLIB
     Dosage: 125 MG, CYCLIC (21 DAYS ON AND 7 DAYS OFF)
     Dates: start: 20200808

REACTIONS (6)
  - Tinnitus [Unknown]
  - Head discomfort [Unknown]
  - Dysphagia [Unknown]
  - Ageusia [Unknown]
  - Stomatitis [Unknown]
  - Nausea [Unknown]
